FAERS Safety Report 5597997-3 (Version None)
Quarter: 2008Q1

REPORT INFORMATION
  Report Type: 
  Country: None (occurrence: None)
  Receive Date: 20080122
  Receipt Date: 20071219
  Transmission Date: 20080703
  Serious: No
  Sender: FDA-Public Use
  Company Number: US-BAYER-200716880NA

PATIENT
  Age: 49 Year
  Sex: Female
  Weight: 75 kg

DRUGS (6)
  1. AVELOX [Suspect]
     Indication: INFECTION
     Route: 048
     Dates: end: 20071204
  2. DURAGESIC-100 [Suspect]
     Indication: PAIN
     Route: 062
     Dates: start: 20070901, end: 20071101
  3. DURAGESIC-100 [Suspect]
     Route: 062
     Dates: start: 20040101
  4. METHADONE HCL [Concomitant]
     Route: 048
  5. FENTORA [Concomitant]
     Indication: PAIN
     Route: 060
  6. PROZAC [Concomitant]
     Route: 048

REACTIONS (3)
  - MALAISE [None]
  - NAUSEA [None]
  - PRURITUS [None]
